FAERS Safety Report 8983255 (Version 1)
Quarter: 2012Q4

REPORT INFORMATION
  Report Type: 
  Country: DE (occurrence: DE)
  Receive Date: 20121224
  Receipt Date: 20121224
  Transmission Date: 20130627
  Serious: Yes (Life-Threatening, Hospitalization, Other)
  Sender: FDA-Public Use
  Company Number: DE-009507513-1209DEU004087

PATIENT
  Age: 56 Year
  Sex: Female
  Weight: 66 kg

DRUGS (6)
  1. TEMODAL [Suspect]
     Indication: GLIOBLASTOMA MULTIFORME
     Dosage: 150 or 125 mg/m2 body surface, 7 days on and 7 days off
     Route: 048
     Dates: start: 20111111, end: 20120210
  2. TEMODAL [Suspect]
     Dosage: 150 mg/m2 body surface, UNK
     Route: 048
     Dates: start: 20111012, end: 20111016
  3. TEMODAL [Suspect]
     Dosage: 75 mg/m2 (1.75 m2 body surface=115 mg temozolomide), UNK
     Route: 048
     Dates: start: 20110802, end: 201109
  4. KEPPRA [Suspect]
     Indication: EPILEPSY
     Dosage: 1 g, bid
     Route: 048
     Dates: end: 20120210
  5. PANTAZOL [Concomitant]
     Indication: PROPHYLAXIS AGAINST GASTROINTESTINAL ULCER
     Dosage: 40 mg, UNK
  6. FORTECORTIN [Concomitant]
     Indication: PERITUMOURAL OEDEMA
     Dosage: 2 mg, qd

REACTIONS (16)
  - Pancytopenia [Not Recovered/Not Resolved]
  - Glioblastoma multiforme [Unknown]
  - Tumour excision [Unknown]
  - Fall [Unknown]
  - Haematoma [Unknown]
  - Grand mal convulsion [Unknown]
  - Febrile infection [Unknown]
  - Pyrexia [Recovered/Resolved]
  - Aplastic anaemia [Unknown]
  - Packed red blood cell transfusion [Unknown]
  - Platelet transfusion [Unknown]
  - Platelet transfusion [Unknown]
  - Platelet transfusion [Unknown]
  - Packed red blood cell transfusion [Unknown]
  - Platelet transfusion [Unknown]
  - Platelet transfusion [Unknown]
